FAERS Safety Report 8718800 (Version 3)
Quarter: 2012Q4

REPORT INFORMATION
  Report Type: Report from Study
  Country: US (occurrence: US)
  Receive Date: 20120810
  Receipt Date: 20120926
  Transmission Date: 20130627
  Serious: Yes (Hospitalization, Other)
  Sender: FDA-Public Use
  Company Number: US-009507513-2012SP023296

PATIENT
  Sex: Male
  Weight: 81.63 kg

DRUGS (10)
  1. VICTRELIS [Suspect]
     Indication: HEPATITIS C
     Dosage: UNK UNK, tid
     Dates: start: 20110930, end: 20120130
  2. COPEGUS [Suspect]
     Indication: HEPATITIS C
     Dosage: 1200 mg, tid
     Route: 023
     Dates: start: 20110930, end: 20120130
  3. COPEGUS [Suspect]
     Dosage: 600 mg, qd
     Dates: start: 20120130
  4. PEGASYS [Suspect]
     Indication: HEPATITIS C
     Dosage: 180 Microgram, qw
     Route: 058
     Dates: start: 201110, end: 20120105
  5. PEGASYS [Suspect]
     Dosage: UNK
  6. INSULIN [Concomitant]
     Route: 048
  7. FENOFIBRATE MICRO [Concomitant]
     Indication: LIPIDS INCREASED
     Dosage: 200 mg, UNK
     Route: 048
  8. LISINOPRIL [Concomitant]
     Indication: HYPERTENSION
     Dosage: 10 mg, qd
     Route: 048
  9. ATIVAN [Concomitant]
     Indication: ANXIETY
     Dosage: 0.5 mg, UNK
     Route: 048
  10. RISPERIDONE [Concomitant]
     Indication: BIPOLAR DISORDER
     Dosage: 3 mg, qd
     Route: 048

REACTIONS (8)
  - Pneumonia [Recovered/Resolved]
  - Anaemia [Recovered/Resolved]
  - Chills [Unknown]
  - Anaemia [Unknown]
  - Renal failure [Unknown]
  - No therapeutic response [Unknown]
  - Thrombocytopenia [Recovered/Resolved]
  - Pneumonia [Recovered/Resolved]
